FAERS Safety Report 6022558-1 (Version None)
Quarter: 2008Q4

REPORT INFORMATION
  Report Type: 
  Country: None (occurrence: None)
  Receive Date: 20081230
  Receipt Date: 20081219
  Transmission Date: 20090506
  Serious: Yes (Other)
  Sender: FDA-Public Use
  Company Number: PHHY2008JP33084

PATIENT
  Sex: Male

DRUGS (12)
  1. SIMULECT [Suspect]
     Indication: RENAL TRANSPLANT
     Dosage: 20 MG/DAY
     Route: 042
     Dates: start: 20030722, end: 20030722
  2. SIMULECT [Suspect]
     Dosage: 20 MG/DAY
     Route: 042
     Dates: start: 20030726, end: 20030726
  3. NEORAL [Suspect]
     Indication: RENAL TRANSPLANT
     Dosage: 450 MG/DAY
     Route: 048
     Dates: start: 20030721, end: 20030721
  4. NEORAL [Suspect]
     Dosage: 500 MG/DAY
     Route: 048
     Dates: start: 20030808
  5. MEDROL [Suspect]
     Indication: RENAL TRANSPLANT
     Dosage: 16 MG/DAY
     Route: 048
     Dates: start: 20030721, end: 20030721
  6. MEDROL [Suspect]
     Dosage: 20 MG/DAY
     Route: 048
     Dates: start: 20030808
  7. CELLCEPT [Suspect]
     Indication: RENAL TRANSPLANT
     Dosage: 2 G/DAY
     Route: 048
     Dates: start: 20080924
  8. BREDININ [Concomitant]
     Indication: RENAL TRANSPLANT
     Dosage: 200 MG/DAY
     Route: 048
     Dates: start: 20030721, end: 20030923
  9. SANDIMMUNE [Concomitant]
     Indication: RENAL TRANSPLANT
     Dosage: 240 MG
     Route: 042
     Dates: start: 20030722, end: 20030728
  10. SOLU-MEDROL [Concomitant]
     Indication: RENAL TRANSPLANT
     Dosage: 500 MG
     Route: 042
     Dates: start: 20030722, end: 20030728
  11. SOLU-MEDROL [Concomitant]
     Dosage: 1 G/DAY
     Dates: start: 20030728, end: 20030730
  12. ORTHOCLONE OKT3 [Concomitant]
     Dosage: UNK
     Dates: start: 20030802, end: 20030810

REACTIONS (2)
  - KIDNEY TRANSPLANT REJECTION [None]
  - OSTEONECROSIS [None]
